FAERS Safety Report 12897276 (Version 3)
Quarter: 2017Q2

REPORT INFORMATION
  Report Type: Spontaneous
  Country: US (occurrence: US)
  Receive Date: 20161031
  Receipt Date: 20170411
  Transmission Date: 20170830
  Serious: No
  Sender: FDA-Public Use
  Company Number: US-JNJFOC-20161016205

PATIENT
  Age: 65 Year
  Sex: Male
  Weight: 132.9 kg

DRUGS (3)
  1. DURAGESIC [Suspect]
     Active Substance: FENTANYL
     Indication: COMPLEX REGIONAL PAIN SYNDROME
     Route: 062
     Dates: start: 201610
  2. DURAGESIC [Suspect]
     Active Substance: FENTANYL
     Indication: PAIN
     Route: 062
     Dates: start: 201610
  3. DURAGESIC [Suspect]
     Active Substance: FENTANYL
     Indication: NERVE INJURY
     Route: 062
     Dates: start: 201610

REACTIONS (4)
  - Product quality issue [Unknown]
  - Withdrawal syndrome [Recovered/Resolved]
  - Wrong technique in product usage process [Unknown]
  - Drug dose omission [Recovered/Resolved]

NARRATIVE: CASE EVENT DATE: 201610
